FAERS Safety Report 22032927 (Version 1)
Quarter: 2023Q1

REPORT INFORMATION
  Report Type: Spontaneous
  Country: JP (occurrence: JP)
  Receive Date: 20230224
  Receipt Date: 20230224
  Transmission Date: 20230418
  Serious: Yes (Other)
  Sender: FDA-Public Use
  Company Number: None

PATIENT
  Age: 60 Year
  Sex: Female
  Weight: 79 kg

DRUGS (3)
  1. ERYTHROMYCIN [Interacting]
     Active Substance: ERYTHROMYCIN
     Indication: Sinusitis
     Dosage: 600 MILLIGRAM, QD
     Route: 065
     Dates: start: 20200406
  2. CELECOXIB [Interacting]
     Active Substance: CELECOXIB
     Indication: Product used for unknown indication
     Dosage: 100 MILLIGRAM, QD
     Route: 065
  3. RIVAROXABAN [Interacting]
     Active Substance: RIVAROXABAN
     Indication: Product used for unknown indication
     Dosage: 10 MILLIGRAM, QD
     Route: 065

REACTIONS (5)
  - Haematoma [Recovered/Resolved]
  - Drug level increased [Recovered/Resolved]
  - Drug interaction [Recovered/Resolved]
  - Drug interaction [Recovered/Resolved]
  - Impaired healing [Recovered/Resolved]
